FAERS Safety Report 4635957-7 (Version None)
Quarter: 2005Q2

REPORT INFORMATION
  Report Type: 
  Country: None (occurrence: None)
  Receive Date: 20050325
  Receipt Date: 20041221
  Transmission Date: 20051028
  Serious: No
  Sender: FDA-Public Use
  Company Number: USA041286675

PATIENT
  Age: 80 Year
  Sex: Female
  Weight: 48 kg

DRUGS (2)
  1. FORTEO [Suspect]
     Indication: OSTEOPOROSIS
     Dosage: 20 UG DAY
     Dates: start: 20041108
  2. EVISTA [Suspect]
     Dates: end: 19980101

REACTIONS (2)
  - BODY HEIGHT DECREASED [None]
  - THROMBOSIS [None]
